FAERS Safety Report 7552687-2 (Version None)
Quarter: 2011Q2

REPORT INFORMATION
  Report Type: 
  Country: None (occurrence: None)
  Receive Date: 20110616
  Receipt Date: 20110608
  Transmission Date: 20111010
  Serious: Yes (Hospitalization)
  Sender: FDA-Public Use
  Company Number: US-B.I. PHARMACEUTICALS,INC./RIDGEFIELD-2011-BP-13524BP

PATIENT
  Age: 86 Year
  Sex: Male

DRUGS (10)
  1. FLECAINIDE ACETATE [Concomitant]
  2. LISINOPRIL [Concomitant]
     Dosage: 20 MG
  3. PRADAXA [Suspect]
  4. METFORMIN HCL [Concomitant]
     Dosage: 2000 MG
  5. DILTIAZEM [Concomitant]
     Dosage: 480 MG
  6. METOPROLOL TARTRATE [Concomitant]
  7. DIGOXIN [Concomitant]
     Dosage: 0.25 MG
  8. ASPIRIN [Concomitant]
     Dosage: 325 MG
  9. GLIMEPIRIDE [Concomitant]
     Dosage: 25 MG
  10. HYDROCHLOROTHIAZIDE [Concomitant]
     Dosage: 25 MG

REACTIONS (3)
  - PERICARDIAL HAEMORRHAGE [None]
  - CARDIAC TAMPONADE [None]
  - PERICARDIAL EFFUSION [None]
